FAERS Safety Report 17691150 (Version 1)
Quarter: 2020Q3

REPORT INFORMATION
  Report Type: Spontaneous
  Country: US (occurrence: US)
  Receive Date: 20200422
  Receipt Date: 20200422
  Transmission Date: 20201104
  Serious: Yes (Death)
  Sender: FDA-Public Use
  Company Number: US-ROCHE-2582913

PATIENT
  Age: 70 Year
  Sex: Female
  Weight: 70 kg

DRUGS (1)
  1. EMICIZUMAB. [Suspect]
     Active Substance: EMICIZUMAB
     Indication: ACQUIRED HAEMOPHILIA
     Dosage: 420 MG TODAY 4/8/20, 210 MG TOMORROW 4/9/20, 210 MG WEEKLY X 3 DOSES, THEN 105 MG WEEKLY MAINTENANCE
     Route: 065
     Dates: start: 20200408

REACTIONS (4)
  - Intentional product use issue [Unknown]
  - Septic shock [Fatal]
  - Pyrexia [Fatal]
  - Off label use [Unknown]

NARRATIVE: CASE EVENT DATE: 20200408
